FAERS Safety Report 23432149 (Version 1)
Quarter: 2024Q1

REPORT INFORMATION
  Report Type: Spontaneous
  Country: ES (occurrence: ES)
  Receive Date: 20240123
  Receipt Date: 20240123
  Transmission Date: 20240409
  Serious: Yes (Hospitalization, Other)
  Sender: FDA-Public Use
  Company Number: ES-BRISTOL-MYERS SQUIBB COMPANY-2024-010277

PATIENT
  Age: 71 Year
  Sex: Female
  Weight: 76.4 kg

DRUGS (14)
  1. LENALIDOMIDE [Suspect]
     Active Substance: LENALIDOMIDE
     Indication: Follicular lymphoma
     Dosage: LAST DOSE PRIOR TO THE SERIOUS ADVERSE EVENT
     Route: 048
  2. LENALIDOMIDE [Suspect]
     Active Substance: LENALIDOMIDE
     Dosage: 20 MG, QD, DAYS 1-21
     Route: 048
     Dates: start: 20230720, end: 20230924
  3. LENALIDOMIDE [Suspect]
     Active Substance: LENALIDOMIDE
     Dosage: LAST DOSES OF INCMOR00208/PLACEBO, LENALIDOMIDE AND RITUXIMAB, PRIOR TO THE SAE WAS TAKEN ON 02OCT20
     Dates: start: 20231002
  4. LENALIDOMIDE [Suspect]
     Active Substance: LENALIDOMIDE
     Dosage: LAST DOSE OF LENALIDOMIDE PRIOR TO THE SAE OF FEVER WAS TAKEN ON 12NOV2023
     Route: 048
     Dates: start: 20231109, end: 20231112
  5. LENALIDOMIDE [Suspect]
     Active Substance: LENALIDOMIDE
     Dosage: THE LAST DOSES OF INCMOR00208/PLACEBO, LENALIDOMIDE, AND RITUXIMAB PRIOR TO THE SAE OF LUNG INFECTIO
     Route: 048
     Dates: start: 20231116, end: 20231122
  6. LENALIDOMIDE [Suspect]
     Active Substance: LENALIDOMIDE
     Route: 048
     Dates: start: 20231207
  7. RITUXIMAB [Suspect]
     Active Substance: RITUXIMAB
     Indication: Follicular lymphoma
     Dosage: 690 MG (LAST DOSE PRIOR TO THE SERIOUS ADVERSE EVENT)
     Route: 042
  8. RITUXIMAB [Suspect]
     Active Substance: RITUXIMAB
     Dosage: 694 MG, CYCLIC, (375 MH/SQ.M) FOR 5 CYCLES
     Route: 042
     Dates: start: 20230720
  9. RITUXIMAB [Suspect]
     Active Substance: RITUXIMAB
     Dosage: LAST DOSES OF INCMOR00208/PLACEBO, LENALIDOMIDE AND RITUXIMAB, PRIOR TO THE SAE WAS TAKEN ON 02OCT20
     Dates: start: 20231002
  10. RITUXIMAB [Suspect]
     Active Substance: RITUXIMAB
     Dosage: INCMOR00208/PLACEBO AND RITUXIMAB PRIOR TO THE SAE OF FEVER WERE TAKEN ON 09NOV2023
     Route: 042
     Dates: start: 20231109, end: 20231113
  11. TAFASITAMAB [Suspect]
     Active Substance: TAFASITAMAB
     Indication: Follicular lymphoma
     Dosage: 974 MG
     Route: 042
     Dates: start: 20230720
  12. TAFASITAMAB [Suspect]
     Active Substance: TAFASITAMAB
     Dosage: LAST DOSE PRIOR TO THE SERIOUS ADVERSE EVENT
     Route: 042
  13. TAFASITAMAB [Suspect]
     Active Substance: TAFASITAMAB
     Dosage: LAST DOSES OF INCMOR00208/PLACEBO, LENALIDOMIDE AND RITUXIMAB, PRIOR TO THE SAE WAS TAKEN ON 02OCT20
     Dates: start: 20231002
  14. TAFASITAMAB [Suspect]
     Active Substance: TAFASITAMAB
     Dosage: LAST DOSE PRIOR TO THE SERIOUS ADVERSE EVENT
     Route: 042
     Dates: start: 20231109, end: 20231113

REACTIONS (2)
  - Pneumonia [Recovered/Resolved]
  - COVID-19 pneumonia [Recovered/Resolved]

NARRATIVE: CASE EVENT DATE: 20231113
